FAERS Safety Report 4401107-5 (Version None)
Quarter: 2004Q3

REPORT INFORMATION
  Report Type: 
  Country: None (occurrence: None)
  Receive Date: 20040907
  Receipt Date: 20031103
  Transmission Date: 20050211
  Serious: No
  Sender: FDA-Public Use
  Company Number: US-BRISTOL-MYERS SQUIBB COMPANY-12425666

PATIENT
  Age: 67 Year
  Sex: Female
  Weight: 73 kg

DRUGS (4)
  1. COUMADIN [Suspect]
     Indication: CARDIAC DISORDER
     Route: 048
     Dates: start: 20030501
  2. TOPROL-XL [Concomitant]
  3. LASIX [Concomitant]
  4. LIPITOR [Concomitant]

REACTIONS (3)
  - ALOPECIA [None]
  - BLISTER [None]
  - RASH SCALY [None]
